FAERS Safety Report 5869594-3 (Version None)
Quarter: 2008Q3

REPORT INFORMATION
  Report Type: 
  Country: None (occurrence: None)
  Receive Date: 20080904
  Receipt Date: 20071022
  Transmission Date: 20090109
  Serious: No
  Sender: FDA-Public Use
  Company Number: US-KINGPHARMUSA00001-K200701377

PATIENT

DRUGS (4)
  1. CYTOMEL [Suspect]
     Indication: TRI-IODOTHYRONINE DECREASED
     Dosage: 5 MCG, UNK
     Route: 048
     Dates: start: 20070717
  2. SYNTHROID [Suspect]
     Indication: HYPOTHYROIDISM
     Dosage: 50 MCG, UNK
     Route: 048
     Dates: start: 20070505, end: 20070717
  3. SYNTHROID [Suspect]
     Dosage: 25 MCG, UNK
     Route: 048
     Dates: start: 20070701
  4. VAGIFEM [Suspect]
     Indication: OESTROGEN REPLACEMENT THERAPY
     Route: 067
     Dates: start: 20070801, end: 20070901

REACTIONS (8)
  - ALOPECIA [None]
  - GINGIVAL INFECTION [None]
  - HEADACHE [None]
  - HERPES SIMPLEX [None]
  - HYPERTHYROIDISM [None]
  - IMMUNE SYSTEM DISORDER [None]
  - RASH [None]
  - WEIGHT INCREASED [None]
